FAERS Safety Report 23646093 (Version 1)
Quarter: 2024Q1

REPORT INFORMATION
  Report Type: Report from Study
  Country: US (occurrence: US)
  Receive Date: 20240319
  Receipt Date: 20240319
  Transmission Date: 20240409
  Serious: No
  Sender: FDA-Public Use
  Company Number: US-ESPERIONTHERAPEUTICS-2023USA00481

PATIENT

DRUGS (5)
  1. BEMPEDOIC ACID\EZETIMIBE [Suspect]
     Active Substance: BEMPEDOIC ACID\EZETIMIBE
     Indication: Blood cholesterol abnormal
     Dosage: 1 DOSAGE FORM (180/10MG), QD
     Route: 048
     Dates: start: 2022
  2. LISINOPRIL [Concomitant]
     Active Substance: LISINOPRIL
     Dosage: UNK
     Route: 065
  3. HYDROCHLOROTHIAZIDE [Concomitant]
     Active Substance: HYDROCHLOROTHIAZIDE
     Dosage: UNK
     Route: 065
  4. METOPROLOL [Concomitant]
     Active Substance: METOPROLOL
     Dosage: UNK
     Route: 065
  5. COLCRYS [Concomitant]
     Active Substance: COLCHICINE
     Dosage: UNK
     Route: 065

REACTIONS (2)
  - Gout [Not Recovered/Not Resolved]
  - Palpitations [Not Recovered/Not Resolved]
